FAERS Safety Report 25934234 (Version 1)
Quarter: 2025Q4

REPORT INFORMATION
  Report Type: Spontaneous
  Country: US (occurrence: US)
  Receive Date: 20251017
  Receipt Date: 20251017
  Transmission Date: 20260118
  Serious: Yes (Other)
  Sender: APOTEX
  Company Number: US-APOTEX-2025AP031039

PATIENT
  Age: 83 Year
  Sex: Female

DRUGS (2)
  1. ANASTROZOLE [Suspect]
     Active Substance: ANASTROZOLE
     Indication: Paget^s disease of nipple
     Dosage: 1 MILLIGRAM, QD
     Route: 065
     Dates: start: 2016, end: 2021
  2. ANASTROZOLE [Suspect]
     Active Substance: ANASTROZOLE
     Indication: Invasive ductal breast carcinoma

REACTIONS (3)
  - Follicular lymphoma [Recovered/Resolved]
  - Apocrine breast carcinoma [Recovered/Resolved]
  - Hormone level abnormal [Unknown]

NARRATIVE: CASE EVENT DATE: 20210101
